FAERS Safety Report 6550139-X (Version None)
Quarter: 2010Q1

REPORT INFORMATION
  Report Type: 
  Country: None (occurrence: None)
  Receive Date: 20100125
  Receipt Date: 20100115
  Transmission Date: 20100710
  Serious: Yes (Other)
  Sender: FDA-Public Use
  Company Number: CN-PFIZER INC-2010005659

PATIENT
  Age: 67 Year
  Sex: Female

DRUGS (4)
  1. NORVASC [Suspect]
     Indication: HYPERTENSION
     Dosage: 5 MG, 1X/DAY
     Route: 048
     Dates: end: 20090101
  2. NORVASC [Interacting]
     Dosage: 5 MG, 2X/DAY
     Route: 048
     Dates: start: 20090101
  3. INDOMETACIN [Interacting]
     Indication: ARTHRALGIA
     Dosage: 25 MG, 2X/DAY
     Route: 048
     Dates: start: 20100101
  4. GLUCOBAY [Concomitant]
     Indication: DIABETES MELLITUS
     Dosage: 50 MG, 3X/DAY
     Route: 048

REACTIONS (2)
  - BLOOD PRESSURE FLUCTUATION [None]
  - DRUG INTERACTION [None]
